FAERS Safety Report 8816824 (Version 1)
Quarter: 2012Q4

REPORT INFORMATION
  Report Type: Spontaneous
  Country: JP (occurrence: None)
  Receive Date: 20121001
  Receipt Date: 20121001
  Transmission Date: 20130627
  Serious: Yes (Other)
  Sender: FDA-Public Use
  Company Number: 2010JP005768

PATIENT
  Age: 17 Month
  Sex: Male
  Weight: 8.2 kg

DRUGS (13)
  1. PROGRAF [Suspect]
     Indication: CORD BLOOD TRANSPLANT THERAPY
     Route: 048
     Dates: start: 20080114, end: 20090114
  2. PROGRAF [Suspect]
     Indication: ACUTE GRAFT VERSUS HOST DISEASE
     Route: 048
     Dates: start: 20080114, end: 20090114
  3. PROGRAF [Suspect]
     Route: 048
     Dates: start: 20080114, end: 20090114
  4. AMBISOME (AMPHOTERICIN B) [Concomitant]
  5. GASTER [Concomitant]
  6. MODACIN (CEFTAZIDIME) [Concomitant]
  7. BAKTAR (SULFAMETHOXAZOLE, TRIMETHOPRIM) [Concomitant]
  8. POLYMYXIN (POLYMYXIN B SULFATE) [Concomitant]
  9. ZOVIRAX (ACICLOVIR SODIUM) [Concomitant]
  10. URSO (URSODEOXYCHOLIC ACID) [Concomitant]
  11. METHYLPREDNISOLONE (METHYLPREDNISOLONE) [Concomitant]
  12. CYCLOPHOSPHAMIDE (CYCLOPHOSPHAMIDE) [Concomitant]
  13. FLUDARABINE (FLUDARABINE) [Concomitant]

REACTIONS (9)
  - Drug ineffective [None]
  - Acute graft versus host disease [None]
  - Chronic graft versus host disease [None]
  - Milk allergy [None]
  - Diarrhoea [None]
  - Abdominal pain [None]
  - Graft versus host disease in skin [None]
  - Gastroenteritis eosinophilic [None]
  - Angioedema [None]
